FAERS Safety Report 6570245-3 (Version None)
Quarter: 2010Q1

REPORT INFORMATION
  Report Type: 
  Country: None (occurrence: None)
  Receive Date: 20100202
  Receipt Date: 20100202
  Transmission Date: 20100710
  Serious: Yes (Disabling)
  Sender: FDA-Public Use
  Company Number: None

PATIENT
  Age: 35 Year
  Sex: Female
  Weight: 60.782 kg

DRUGS (2)
  1. ZICAM COLD REMEDY [Suspect]
  2. ZICAM NO DRIP LIQUID NASAL GEL SWAB [Suspect]

REACTIONS (2)
  - AGEUSIA [None]
  - ANOSMIA [None]
